FAERS Safety Report 14690866 (Version 1)
Quarter: 2018Q1

REPORT INFORMATION
  Report Type: Spontaneous
  Country: US (occurrence: US)
  Receive Date: 20180328
  Receipt Date: 20180328
  Transmission Date: 20180509
  Serious: Yes (Hospitalization)
  Sender: FDA-Public Use
  Company Number: None

PATIENT
  Age: 56 Year
  Sex: Female
  Weight: 56.7 kg

DRUGS (2)
  1. PROLIA [Suspect]
     Active Substance: DENOSUMAB
     Indication: OSTEOPOROSIS
     Dosage: FREQUENCY - Q 6 MONTHS
     Route: 058
     Dates: start: 20170404, end: 20171112
  2. PROLIA [Suspect]
     Active Substance: DENOSUMAB
     Indication: OSTEOPENIA
     Dosage: FREQUENCY - Q 6 MONTHS
     Route: 058
     Dates: start: 20120225, end: 20130304

REACTIONS (3)
  - Fall [None]
  - Femur fracture [None]
  - Haemorrhagic anaemia [None]

NARRATIVE: CASE EVENT DATE: 20171112
